FAERS Safety Report 5808978-6 (Version None)
Quarter: 2008Q3

REPORT INFORMATION
  Report Type: 
  Country: None (occurrence: None)
  Receive Date: 20080710
  Receipt Date: 20080710
  Transmission Date: 20090109
  Serious: Yes (Other)
  Sender: FDA-Public Use
  Company Number: None

PATIENT
  Age: 54 Year
  Sex: Female
  Weight: 63.5036 kg

DRUGS (1)
  1. PAROXETINE HCL [Suspect]
     Indication: DEATH OF RELATIVE
     Dosage: 40 MG DAILY PO
     Route: 048
     Dates: start: 20060729

REACTIONS (16)
  - AGGRESSION [None]
  - ANGER [None]
  - BALANCE DISORDER [None]
  - DIZZINESS [None]
  - DRUG DEPENDENCE [None]
  - DRUG WITHDRAWAL SYNDROME [None]
  - FEAR [None]
  - FEELING ABNORMAL [None]
  - GAIT DISTURBANCE [None]
  - INFLUENZA LIKE ILLNESS [None]
  - LETHARGY [None]
  - MALAISE [None]
  - NAUSEA [None]
  - SELF-MEDICATION [None]
  - SUICIDAL IDEATION [None]
  - TINNITUS [None]
